FAERS Safety Report 14070988 (Version 24)
Quarter: 2019Q2

REPORT INFORMATION
  Report Type: Report from Study
  Country: CA (occurrence: CA)
  Receive Date: 20171011
  Receipt Date: 20190613
  Transmission Date: 20190711
  Serious: Yes (Hospitalization, Other)
  Sender: FDA-Public Use
  Company Number: CA-BRISTOL-MYERS SQUIBB COMPANY-BMS-2017-035198

PATIENT
  Age: 78 Year
  Sex: Male

DRUGS (9)
  1. ABATACEPT [Suspect]
     Active Substance: ABATACEPT
     Indication: RHEUMATOID ARTHRITIS
     Dosage: 750 MG, Q4WK
     Route: 042
     Dates: start: 20150125
  2. ABATACEPT [Suspect]
     Active Substance: ABATACEPT
     Indication: PRODUCT USED FOR UNKNOWN INDICATION
     Dosage: 750 MG, Q4WK
     Route: 042
     Dates: start: 20120125
  3. XARELTO [Concomitant]
     Active Substance: RIVAROXABAN
     Indication: PRODUCT USED FOR UNKNOWN INDICATION
     Route: 065
  4. VITAMIN D                          /00107901/ [Concomitant]
     Active Substance: ERGOCALCIFEROL
     Indication: PRODUCT USED FOR UNKNOWN INDICATION
     Dosage: UNK
     Route: 065
  5. ATORVASTATIN [Concomitant]
     Active Substance: ATORVASTATIN
     Indication: PRODUCT USED FOR UNKNOWN INDICATION
     Route: 065
  6. CALCIUM [Concomitant]
     Active Substance: CALCIUM
     Indication: PRODUCT USED FOR UNKNOWN INDICATION
     Dosage: UNK
     Route: 065
  7. LOPRESSOR [Concomitant]
     Active Substance: METOPROLOL TARTRATE
     Indication: PRODUCT USED FOR UNKNOWN INDICATION
     Route: 065
  8. PREDNISONE. [Concomitant]
     Active Substance: PREDNISONE
     Indication: PRODUCT USED FOR UNKNOWN INDICATION
     Route: 065
  9. PANTOLOC                           /01263204/ [Concomitant]
     Active Substance: PANTOPRAZOLE SODIUM
     Indication: PRODUCT USED FOR UNKNOWN INDICATION
     Dosage: UNK
     Route: 065

REACTIONS (36)
  - Bronchitis [Recovered/Resolved]
  - Infected cyst [Recovering/Resolving]
  - Inflammation [Recovering/Resolving]
  - Wound secretion [Unknown]
  - Infection [Unknown]
  - Cyst [Recovered/Resolved]
  - Arthralgia [Unknown]
  - Pain in extremity [Unknown]
  - Rheumatoid arthritis [Recovering/Resolving]
  - Hypersensitivity [Unknown]
  - Inguinal hernia [Unknown]
  - Wound complication [Unknown]
  - Respiratory disorder [Recovered/Resolved]
  - Epistaxis [Recovering/Resolving]
  - Tooth disorder [Unknown]
  - Head injury [Recovering/Resolving]
  - Occult blood positive [Unknown]
  - Neck pain [Unknown]
  - Musculoskeletal pain [Unknown]
  - Dyspnoea [Unknown]
  - Chills [Unknown]
  - Fall [Unknown]
  - Cough [Not Recovered/Not Resolved]
  - Inflammatory pain [Unknown]
  - Groin pain [Unknown]
  - Limb injury [Unknown]
  - Infusion site extravasation [Recovered/Resolved]
  - Skin cancer [Recovering/Resolving]
  - Influenza [Recovering/Resolving]
  - Swelling [Unknown]
  - Dyspnoea exertional [Unknown]
  - Infusion site oedema [Unknown]
  - Blood iron decreased [Unknown]
  - Faeces discoloured [Unknown]
  - Pneumonia [Recovering/Resolving]
  - Pulmonary function test decreased [Unknown]

NARRATIVE: CASE EVENT DATE: 20170413
